FAERS Safety Report 21050285 (Version 1)
Quarter: 2022Q3

REPORT INFORMATION
  Report Type: Spontaneous
  Country: CN (occurrence: CN)
  Receive Date: 20220707
  Receipt Date: 20220707
  Transmission Date: 20221027
  Serious: Yes (Hospitalization)
  Sender: FDA-Public Use
  Company Number: None

PATIENT
  Age: 45 Year
  Sex: Male
  Weight: 65 kg

DRUGS (4)
  1. OLANZAPINE [Suspect]
     Active Substance: OLANZAPINE
     Indication: Schizophrenia
     Dosage: 20MG,QD
     Route: 048
     Dates: start: 20220228
  2. OLANZAPINE [Suspect]
     Active Substance: OLANZAPINE
     Dosage: REDUCED TO 10MG/DAY
     Route: 048
     Dates: start: 20220503
  3. OLANZAPINE [Suspect]
     Active Substance: OLANZAPINE
     Dosage: CONTINUE TO REDUCE OLANZAPINE TABLETS TO 5 MG/DAY
     Route: 048
     Dates: start: 20220510, end: 20220517
  4. SULPIRIDE [Suspect]
     Active Substance: SULPIRIDE
     Indication: Schizophrenia
     Dosage: 0.1 G TWICE DAILY
     Route: 048
     Dates: start: 20220228, end: 20220629

REACTIONS (1)
  - Extrapyramidal disorder [Recovering/Resolving]

NARRATIVE: CASE EVENT DATE: 20220503
